FAERS Safety Report 8820715 (Version 1)
Quarter: 2012Q4

REPORT INFORMATION
  Report Type: 
  Country: NL (occurrence: NL)
  Receive Date: 20121002
  Receipt Date: 20121002
  Transmission Date: 20130627
  Serious: Yes (Other)
  Sender: FDA-Public Use
  Company Number: NL-PFIZER INC-2012239102

PATIENT
  Sex: Female

DRUGS (3)
  1. PANTOPRAZOLE [Suspect]
     Indication: HELICOBACTER INFECTION
     Dosage: 40 mg, 2x/day
     Route: 048
  2. CLARITHROMYCIN [Suspect]
     Indication: HELICOBACTER INFECTION
     Dosage: 500 mg, 2x/day
     Route: 048
  3. AMOXICILLIN TRIHYDRATE [Suspect]
     Indication: HELICOBACTER INFECTION
     Dosage: 1 g, 2x/day
     Route: 048

REACTIONS (3)
  - Haemorrhage [Unknown]
  - Diarrhoea [Unknown]
  - Abdominal pain [Unknown]
